FAERS Safety Report 26063925 (Version 1)
Quarter: 2025Q4

REPORT INFORMATION
  Report Type: Other
  Country: CN (occurrence: CN)
  Receive Date: 20251119
  Receipt Date: 20251119
  Transmission Date: 20260117
  Serious: Yes (Hospitalization, Other)
  Sender: ANI
  Company Number: CN-ANIPHARMA-031158

PATIENT
  Age: 2 Year
  Sex: Male

DRUGS (1)
  1. LACTULOSE [Suspect]
     Active Substance: LACTULOSE
     Indication: Bowel preparation

REACTIONS (1)
  - Intussusception [Recovered/Resolved]
